FAERS Safety Report 8953268 (Version 2)
Quarter: 2012Q4

REPORT INFORMATION
  Report Type: 
  Country: US (occurrence: US)
  Receive Date: 20121206
  Receipt Date: 20121226
  Transmission Date: 20130627
  Serious: Yes (Other)
  Sender: FDA-Public Use
  Company Number: US-JNJFOC-20121114812

PATIENT
  Sex: Female
  Weight: 68.04 kg

DRUGS (3)
  1. TRINESSA [Suspect]
     Indication: ORAL CONTRACEPTION
     Route: 048
     Dates: start: 201211
  2. TRINESSA [Suspect]
     Indication: ORAL CONTRACEPTION
     Dosage: 28 day regimen
     Route: 048
     Dates: start: 2008, end: 201211
  3. LYRICA [Suspect]
     Indication: PRODUCT USED FOR UNKNOWN INDICATION
     Route: 048
     Dates: start: 2010

REACTIONS (12)
  - Suicidal ideation [Not Recovered/Not Resolved]
  - Depression [Not Recovered/Not Resolved]
  - Anxiety [Not Recovered/Not Resolved]
  - Eating disorder [Unknown]
  - Crying [Not Recovered/Not Resolved]
  - Bacterial infection [Unknown]
  - Alopecia [Not Recovered/Not Resolved]
  - Fatigue [Unknown]
  - Vomiting [Not Recovered/Not Resolved]
  - Nausea [Not Recovered/Not Resolved]
  - Acne [Not Recovered/Not Resolved]
  - Fungal infection [Unknown]
